FAERS Safety Report 10533810 (Version 1)
Quarter: 2014Q4

REPORT INFORMATION
  Report Type: Spontaneous
  Country: US (occurrence: None)
  Receive Date: 20141021
  Receipt Date: 20141021
  Transmission Date: 20150529
  Serious: No
  Sender: FDA-Public Use
  Company Number: None

PATIENT
  Age: 61 Year
  Sex: Female
  Weight: 88.45 kg

DRUGS (1)
  1. DONEPEZIL [Suspect]
     Active Substance: DONEPEZIL
     Indication: COGNITIVE DISORDER
     Dosage: 1 TAB WITH BREAKFAST DAILY ONCE DAILY TAKEN BY MOUTH
     Route: 048
     Dates: start: 20140909, end: 20140920

REACTIONS (2)
  - Decreased appetite [None]
  - Libido increased [None]

NARRATIVE: CASE EVENT DATE: 20140920
